FAERS Safety Report 9521740 (Version 2)
Quarter: 2013Q4

REPORT INFORMATION
  Report Type: Report from Study
  Country: CA (occurrence: CA)
  Receive Date: 20130913
  Receipt Date: 20131127
  Transmission Date: 20140711
  Serious: Yes (Death)
  Sender: FDA-Public Use
  Company Number: PHHY2013CA101215

PATIENT
  Age: 85 Year
  Sex: Male

DRUGS (7)
  1. CLOZARIL [Suspect]
     Indication: PARKINSON^S DISEASE
     Dosage: 625 MG, UNK
     Route: 048
     Dates: start: 20100713
  2. CLOZARIL [Suspect]
     Dosage: UNK
     Dates: start: 20130711
  3. FUROSEMIDE [Concomitant]
     Dosage: UNK UKN, UNK
  4. LEVODOPA [Concomitant]
     Dosage: UNK UKN, UNK
  5. CARBIDOPA [Concomitant]
     Dosage: UNK UKN, UNK
  6. NEXIUM [Concomitant]
     Dosage: UNK UKN, UNK
  7. CITALOPRAM [Concomitant]
     Dosage: UNK UKN, UNK

REACTIONS (1)
  - Death [Fatal]
